FAERS Safety Report 4829328-8 (Version None)
Quarter: 2005Q4

REPORT INFORMATION
  Report Type: 
  Country: None (occurrence: None)
  Receive Date: 20051115
  Receipt Date: 20051115
  Transmission Date: 20060501
  Serious: Yes (Hospitalization)
  Sender: FDA-Public Use
  Company Number: None

PATIENT
  Age: 61 Year
  Sex: Male
  Weight: 131.0895 kg

DRUGS (2)
  1. SIMVASTATIN [Suspect]
     Indication: HYPERLIPIDAEMIA
     Dosage: 80MG PO QHS
     Route: 048
     Dates: start: 20040514, end: 20050819
  2. GEMFIBROZIL [Suspect]
     Dosage: 600MG  PO BID
     Route: 048
     Dates: start: 20041026, end: 20050819

REACTIONS (6)
  - ABASIA [None]
  - ASTHENIA [None]
  - BLOOD CREATINE PHOSPHOKINASE INCREASED [None]
  - FALL [None]
  - MUSCLE SPASMS [None]
  - RENAL FAILURE ACUTE [None]
